FAERS Safety Report 6305787-9 (Version None)
Quarter: 2009Q3

REPORT INFORMATION
  Report Type: 
  Country: None (occurrence: None)
  Receive Date: 20090803
  Receipt Date: 20090108
  Transmission Date: 20100115
  Serious: Yes (Life-Threatening)
  Sender: FDA-Public Use
  Company Number: 139504

PATIENT
  Age: 50 Year
  Sex: Female

DRUGS (2)
  1. MIDAZOLAM HCL [Suspect]
     Dosage: 5 MG, ONCE, INTRAVENOUS : 2 MG (ONCE)
     Route: 042
     Dates: start: 20080828, end: 20080828
  2. FENTANYL [Suspect]
     Dosage: 75 MG, ONCE
     Dates: start: 20080828, end: 20080828

REACTIONS (2)
  - BLOOD PRESSURE DECREASED [None]
  - RESPIRATORY RATE DECREASED [None]
